FAERS Safety Report 5823167-7 (Version None)
Quarter: 2008Q3

REPORT INFORMATION
  Report Type: 
  Country: None (occurrence: None)
  Receive Date: 20080725
  Receipt Date: 20080715
  Transmission Date: 20090109
  Serious: Yes (Other)
  Sender: FDA-Public Use
  Company Number: PHHY2008DE14369

PATIENT
  Sex: Female

DRUGS (6)
  1. ZOMETA [Suspect]
     Indication: METASTASES TO BONE
     Dosage: 4 MG EVERY 4 WEEKS
     Route: 042
     Dates: start: 20021008, end: 20080501
  2. TRANSTEC [Concomitant]
     Indication: PAIN
     Dosage: 70 UG DAILY
     Route: 062
     Dates: start: 20080301
  3. IBUPROFEN TABLETS [Concomitant]
     Indication: PAIN
     Dosage: 600 MG 1TO 3 TIMES IF NEEDED
     Route: 048
     Dates: start: 20020101, end: 20080101
  4. BISOPROLOL FUMARATE [Concomitant]
     Indication: HYPERTENSION
     Dosage: 5 MG DAILY
     Route: 048
     Dates: start: 20030701
  5. RAMIPRIL [Concomitant]
     Indication: HYPERTENSION
     Dosage: 5 MG DAILY
     Route: 048
     Dates: start: 20070301
  6. PANTOPRAZOLE SODIUM [Concomitant]
     Indication: GASTRITIS
     Dosage: 10 MG DAILY
     Route: 048
     Dates: start: 20071101

REACTIONS (2)
  - IMPAIRED HEALING [None]
  - OSTEONECROSIS [None]
